FAERS Safety Report 10077800 (Version 2)
Quarter: 2014Q2

REPORT INFORMATION
  Report Type: Spontaneous
  Country: GB (occurrence: GB)
  Receive Date: 20140414
  Receipt Date: 20140414
  Transmission Date: 20141212
  Serious: Yes (Disabling)
  Sender: FDA-Public Use
  Company Number: PHFR2013GB007019

PATIENT
  Age: 41 Year
  Sex: Male

DRUGS (6)
  1. CLOZARIL [Suspect]
     Indication: SCHIZOPHRENIA
     Dosage: 425 UKN, UNK
     Route: 048
     Dates: start: 20130130
  2. CLOZARIL [Suspect]
     Indication: ASPERGILLUS INFECTION
  3. CLOZARIL [Suspect]
     Indication: DEPRESSION
  4. LITHIUM [Concomitant]
     Indication: DEPRESSED MOOD
     Dosage: 1000 DAILY
     Route: 048
  5. CLOMIPRAMINE [Concomitant]
     Indication: DEPRESSED MOOD
     Dosage: 125 DAILY
     Route: 048
  6. PROCYCLIDINE [Concomitant]
     Indication: EXTRAPYRAMIDAL DISORDER
     Dosage: 15 MG, DALIY
     Route: 048

REACTIONS (1)
  - Parotid gland enlargement [Not Recovered/Not Resolved]
